FAERS Safety Report 8439272-5 (Version None)
Quarter: 2012Q2

REPORT INFORMATION
  Report Type: 
  Country: None (occurrence: None)
  Receive Date: 20120615
  Receipt Date: 20120607
  Transmission Date: 20120825
  Serious: Yes (Other)
  Sender: FDA-Public Use
  Company Number: JP-ASTELLAS-2012JP005256

PATIENT
  Age: 17 Year
  Sex: Female

DRUGS (5)
  1. CORTICOSTEROID NOS [Concomitant]
     Dosage: UNK
     Route: 065
     Dates: start: 20091101
  2. PROGRAF [Suspect]
     Indication: IMMUNOSUPPRESSANT DRUG THERAPY
     Dosage: UNK
     Route: 065
     Dates: end: 20091101
  3. CELLCEPT [Concomitant]
     Indication: IMMUNOSUPPRESSION
     Dosage: UNK
     Route: 048
     Dates: start: 20091101
  4. PROGRAF [Suspect]
     Dosage: UNK
     Route: 065
     Dates: start: 20091101
  5. CORTICOSTEROID NOS [Concomitant]
     Dosage: UNK
     Route: 065
     Dates: end: 20091101

REACTIONS (3)
  - DRUG INEFFECTIVE [None]
  - CYTOMEGALOVIRUS CHORIORETINITIS [None]
  - GRAFT VERSUS HOST DISEASE [None]
